FAERS Safety Report 13941726 (Version 1)
Quarter: 2017Q3

REPORT INFORMATION
  Report Type: Spontaneous
  Country: US (occurrence: US)
  Receive Date: 20170906
  Receipt Date: 20170906
  Transmission Date: 20171127
  Serious: No
  Sender: FDA-Public Use
  Company Number: None

PATIENT
  Age: 53 Year
  Sex: Female
  Weight: 57.6 kg

DRUGS (1)
  1. SULFAMETH/TMP 800/160MG TB [Suspect]
     Active Substance: SULFAMETHOXAZOLE\TRIMETHOPRIM
     Indication: URINARY TRACT INFECTION
     Dosage: ?          QUANTITY:10 TABLET(S);?
     Route: 048

REACTIONS (3)
  - Dysgraphia [None]
  - Nervousness [None]
  - Tremor [None]

NARRATIVE: CASE EVENT DATE: 20170904
